FAERS Safety Report 7900591-X (Version None)
Quarter: 2011Q4

REPORT INFORMATION
  Report Type: 
  Country: None (occurrence: None)
  Receive Date: 20111108
  Receipt Date: 20111025
  Transmission Date: 20120403
  Serious: Yes (Other)
  Sender: FDA-Public Use
  Company Number: JP-MYLANLABS-2011S1021311

PATIENT
  Age: 74 Year
  Sex: Female

DRUGS (6)
  1. CARBOPLATIN [Suspect]
     Route: 041
  2. CARBOPLATIN [Suspect]
     Route: 041
     Dates: start: 20111005
  3. PACLITAXEL [Suspect]
     Route: 041
  4. CARBOPLATIN [Suspect]
     Indication: UTERINE CANCER
     Route: 041
     Dates: start: 20110817
  5. PACLITAXEL [Suspect]
     Route: 041
     Dates: start: 20111005
  6. PACLITAXEL [Suspect]
     Indication: UTERINE CANCER
     Route: 041
     Dates: start: 20110817

REACTIONS (1)
  - INTERSTITIAL LUNG DISEASE [None]
